FAERS Safety Report 12633570 (Version 1)
Quarter: 2016Q3

REPORT INFORMATION
  Report Type: Spontaneous
  Country: US (occurrence: US)
  Receive Date: 20160809
  Receipt Date: 20160809
  Transmission Date: 20161109
  Serious: Yes (Other)
  Sender: FDA-Public Use
  Company Number: US-MYLANLABS-2016M1032356

PATIENT

DRUGS (5)
  1. IFOSFAMIDE. [Suspect]
     Active Substance: IFOSFAMIDE
     Indication: ANAPLASTIC LARGE-CELL LYMPHOMA
     Route: 065
  2. CARBOPLATIN. [Suspect]
     Active Substance: CARBOPLATIN
     Indication: ANAPLASTIC LARGE-CELL LYMPHOMA
     Route: 065
  3. ETOPOSIDE. [Suspect]
     Active Substance: ETOPOSIDE
     Indication: ANAPLASTIC LARGE-CELL LYMPHOMA
     Route: 065
  4. CRIZOTINIB [Suspect]
     Active Substance: CRIZOTINIB
     Indication: ANAPLASTIC LARGE-CELL LYMPHOMA
     Route: 048
  5. CRIZOTINIB [Suspect]
     Active Substance: CRIZOTINIB
     Route: 048

REACTIONS (5)
  - Encephalopathy [Unknown]
  - Tubulointerstitial nephritis [Recovering/Resolving]
  - Diarrhoea [Unknown]
  - Thrombocytopenia [Unknown]
  - Renal failure [Recovering/Resolving]
